FAERS Safety Report 14008596 (Version 1)
Quarter: 2017Q3

REPORT INFORMATION
  Report Type: Spontaneous
  Country: US (occurrence: US)
  Receive Date: 20170925
  Receipt Date: 20170925
  Transmission Date: 20171128
  Serious: Yes (Other)
  Sender: FDA-Public Use
  Company Number: US-ELI_LILLY_AND_COMPANY-US201709006054

PATIENT
  Sex: Female

DRUGS (2)
  1. EFEXOR XL [Suspect]
     Active Substance: VENLAFAXINE HYDROCHLORIDE
     Indication: ANXIETY
     Dosage: UNK, UNKNOWN
     Route: 065
     Dates: start: 20170803
  2. CYMBALTA [Suspect]
     Active Substance: DULOXETINE HYDROCHLORIDE
     Indication: ANXIETY
     Dosage: UNK, UNKNOWN
     Route: 065

REACTIONS (14)
  - Loss of consciousness [Unknown]
  - Confusional state [Unknown]
  - Blood sodium increased [Unknown]
  - Disorganised speech [Unknown]
  - Anal incontinence [Recovered/Resolved]
  - Panic attack [Unknown]
  - Muscle tightness [Unknown]
  - Seizure [Recovered/Resolved]
  - Pain in extremity [Recovered/Resolved]
  - Nausea [Unknown]
  - Myalgia [Unknown]
  - Hyperhidrosis [Unknown]
  - Restless legs syndrome [Recovered/Resolved]
  - Blood pressure increased [Unknown]

NARRATIVE: CASE EVENT DATE: 20170803
